FAERS Safety Report 14072602 (Version 2)
Quarter: 2018Q1

REPORT INFORMATION
  Report Type: Spontaneous
  Country: US (occurrence: US)
  Receive Date: 20171010
  Receipt Date: 20180105
  Transmission Date: 20180508
  Serious: No
  Sender: FDA-Public Use
  Company Number: US-SA-2017SA171756

PATIENT
  Age: 23 Year
  Sex: Male

DRUGS (2)
  1. DUPIXENT [Suspect]
     Active Substance: DUPILUMAB
     Route: 058
     Dates: start: 20170901
  2. DUPIXENT [Suspect]
     Active Substance: DUPILUMAB
     Route: 058

REACTIONS (9)
  - Dry eye [Unknown]
  - Dermatitis [Unknown]
  - Skin fissures [Unknown]
  - Skin exfoliation [Unknown]
  - Inflammation [Unknown]
  - Skin discolouration [Unknown]
  - Eye irritation [Unknown]
  - Pain [Unknown]
  - Skin tightness [Unknown]

NARRATIVE: CASE EVENT DATE: 201709
